FAERS Safety Report 22378247 (Version 1)
Quarter: 2023Q2

REPORT INFORMATION
  Report Type: Spontaneous
  Country: CN (occurrence: CN)
  Receive Date: 20230529
  Receipt Date: 20230529
  Transmission Date: 20230721
  Serious: Yes (Other)
  Sender: FDA-Public Use
  Company Number: None

PATIENT
  Age: 68 Year
  Sex: Female
  Weight: 79 kg

DRUGS (4)
  1. CYCLOPHOSPHAMIDE [Suspect]
     Active Substance: CYCLOPHOSPHAMIDE
     Indication: Chronic lymphocytic leukaemia
     Dosage: 0.2 G, QD, DILUTED WITH 250 ML OF 0.9% SODIUM CHLORIDE (ROUTE: INTRA-PUMP INJECTION)
     Route: 050
     Dates: start: 20230404, end: 20230411
  2. SODIUM CHLORIDE [Suspect]
     Active Substance: SODIUM CHLORIDE
     Indication: Medication dilution
     Dosage: 0.9% 250 ML, QD, USED TO DILUTE 0.2 G OF CYCLOPHOSPHAMIDE (ROUTE: INTRA-PUMP INJECTION)
     Route: 050
     Dates: start: 20230404, end: 20230411
  3. SODIUM CHLORIDE [Suspect]
     Active Substance: SODIUM CHLORIDE
     Dosage: 0.9% 600 ML, QD, USED TO DILUTE 600 MG OF RITUXIMAB (ROUTE: INTRA-PUMP INJECTION)
     Route: 050
     Dates: start: 20230412, end: 20230412
  4. RITUXIMAB [Suspect]
     Active Substance: RITUXIMAB
     Indication: Chronic lymphocytic leukaemia
     Dosage: 600 MG, QD, DILUTED WITH 600 ML OF 0.9% SODIUM CHLORIDE (ROUTE: INTRA-PUMP INJECTION)
     Route: 050
     Dates: start: 20230412, end: 20230512

REACTIONS (1)
  - Thrombocytopenia [Recovering/Resolving]

NARRATIVE: CASE EVENT DATE: 20230413
